FAERS Safety Report 10040912 (Version 2)
Quarter: 2014Q2

REPORT INFORMATION
  Report Type: Spontaneous
  Country: VE (occurrence: VE)
  Receive Date: 20140327
  Receipt Date: 20140422
  Transmission Date: 20141212
  Serious: Yes (Other)
  Sender: FDA-Public Use
  Company Number: VE-BAYER-2014-041963

PATIENT
  Age: 84 Year
  Sex: Male

DRUGS (2)
  1. AVELOX [Suspect]
     Indication: RESPIRATORY TRACT INFECTION
     Dosage: 400 MG, QD
     Route: 048
     Dates: start: 20130804, end: 20130809
  2. SERTRALINE [Concomitant]
     Indication: DEPRESSION

REACTIONS (2)
  - Dementia [Recovered/Resolved]
  - Confusional state [Recovered/Resolved]
